FAERS Safety Report 5876851-3 (Version None)
Quarter: 2008Q3

REPORT INFORMATION
  Report Type: 
  Country: None (occurrence: None)
  Receive Date: 20080908
  Receipt Date: 20080829
  Transmission Date: 20090109
  Serious: Yes (Hospitalization)
  Sender: FDA-Public Use
  Company Number: 2008AL005549

PATIENT
  Age: 67 Year
  Sex: Male
  Weight: 81.1939 kg

DRUGS (5)
  1. DIGOXIN [Suspect]
     Indication: ATRIAL FIBRILLATION
     Dosage: 0.25 MG, QHS, PO
     Route: 048
  2. METOPROLOL TARTRATE [Concomitant]
  3. RAMPIRIL [Concomitant]
  4. CRESTOR [Concomitant]
  5. FLOMAX [Concomitant]

REACTIONS (2)
  - CARDIAC PACEMAKER INSERTION [None]
  - CEREBROVASCULAR ACCIDENT [None]
